FAERS Safety Report 5607474-9 (Version None)
Quarter: 2008Q1

REPORT INFORMATION
  Report Type: 
  Country: None (occurrence: None)
  Receive Date: 20080125
  Receipt Date: 20080111
  Transmission Date: 20080703
  Serious: Yes (Hospitalization)
  Sender: FDA-Public Use
  Company Number: 8029001

PATIENT
  Age: 66 Year
  Sex: Male

DRUGS (1)
  1. KEPPRA [Suspect]
     Indication: BIPOLAR DISORDER

REACTIONS (6)
  - APHASIA [None]
  - ASTHENIA [None]
  - CONFUSIONAL STATE [None]
  - HYPERSENSITIVITY [None]
  - STEREOTYPY [None]
  - STUPOR [None]
